FAERS Safety Report 4615265-0 (Version None)
Quarter: 2005Q1

REPORT INFORMATION
  Report Type: 
  Country: None (occurrence: None)
  Receive Date: 20050317
  Receipt Date: 20050302
  Transmission Date: 20050727
  Serious: No
  Sender: FDA-Public Use
  Company Number: 10459

PATIENT
  Age: 15 Year
  Sex: Female

DRUGS (8)
  1. METHOTREXATE [Suspect]
     Indication: POLYARTHRITIS
     Dosage: 22.5 MG WEEKLY/10 MG
     Dates: start: 20030601, end: 20040129
  2. METHOTREXATE [Suspect]
     Indication: POLYARTHRITIS
     Dosage: 22.5 MG WEEKLY/10 MG
     Dates: start: 20040505
  3. ETANERCEPT [Concomitant]
  4. DICLOFENAC [Concomitant]
  5. PREDNISOLONE [Concomitant]
  6. DOMPERIDONE [Concomitant]
  7. TRAMADOL HCL [Concomitant]
  8. FOLIC ACID [Concomitant]

REACTIONS (6)
  - BIOPSY KIDNEY ABNORMAL [None]
  - BLOOD URINE PRESENT [None]
  - NAUSEA [None]
  - PROTEIN URINE [None]
  - VOMITING [None]
  - WEIGHT DECREASED [None]
